FAERS Safety Report 10907616 (Version 1)
Quarter: 2015Q1

REPORT INFORMATION
  Report Type: Spontaneous
  Country: US (occurrence: US)
  Receive Date: 20150312
  Receipt Date: 20150312
  Transmission Date: 20150721
  Serious: Yes (Other)
  Sender: FDA-Public Use
  Company Number: US-PFIZER INC-2015088510

PATIENT
  Age: 57 Year
  Sex: Male
  Weight: 131 kg

DRUGS (3)
  1. KLONOPIN [Concomitant]
     Active Substance: CLONAZEPAM
     Indication: FOOT FRACTURE
     Dosage: 230 MG, 3X/DAY VIA RECTAL OR VIA NASAL INHALATION
  2. VIAGRA [Suspect]
     Active Substance: SILDENAFIL CITRATE
     Indication: ERECTILE DYSFUNCTION
     Dosage: UNK
  3. OXYCONTIN [Concomitant]
     Active Substance: OXYCODONE HYDROCHLORIDE
     Indication: SPINAL FRACTURE
     Dosage: 950 MG, 2X/DAY

REACTIONS (2)
  - Erection increased [Not Recovered/Not Resolved]
  - Chest discomfort [Not Recovered/Not Resolved]
